FAERS Safety Report 14978683 (Version 1)
Quarter: 2018Q2

REPORT INFORMATION
  Report Type: Spontaneous
  Country: US (occurrence: US)
  Receive Date: 20180606
  Receipt Date: 20180606
  Transmission Date: 20180711
  Serious: No
  Sender: FDA-Public Use
  Company Number: PHEH2018US021907

PATIENT
  Sex: Male

DRUGS (1)
  1. MEKINIST [Suspect]
     Active Substance: TRAMETINIB DIMETHYL SULFOXIDE
     Indication: MALIGNANT NEOPLASM OF SPINAL CORD
     Dosage: 1 MG, QD
     Route: 048
     Dates: start: 20180321

REACTIONS (2)
  - Ingrowing nail [Unknown]
  - Product use in unapproved indication [Unknown]
